FAERS Safety Report 15515044 (Version 3)
Quarter: 2018Q4

REPORT INFORMATION
  Report Type: Spontaneous
  Country: US (occurrence: US)
  Receive Date: 20181017
  Receipt Date: 20181219
  Transmission Date: 20190205
  Serious: No
  Sender: FDA-Public Use
  Company Number: US-ALEXION PHARMACEUTICALS INC.-A201813399

PATIENT
  Age: 36 Year
  Sex: Female

DRUGS (2)
  1. STRENSIQ [Suspect]
     Active Substance: ASFOTASE ALFA
     Indication: HYPOPHOSPHATASIA
     Dosage: UNK
     Route: 058
  2. STRENSIQ [Suspect]
     Active Substance: ASFOTASE ALFA
     Dosage: 2 MG/KG, TIW
     Route: 058

REACTIONS (7)
  - Cutaneous calcification [Unknown]
  - Injection site reaction [Unknown]
  - Fat necrosis [Unknown]
  - Blood alkaline phosphatase decreased [Recovering/Resolving]
  - Bone pain [Recovered/Resolved]
  - Pregnancy [Not Recovered/Not Resolved]
  - Injection site plaque [Unknown]

NARRATIVE: CASE EVENT DATE: 20181009
